FAERS Safety Report 10242838 (Version 1)
Quarter: 2014Q2

REPORT INFORMATION
  Report Type: Report from Study
  Country: ES (occurrence: ES)
  Receive Date: 20140618
  Receipt Date: 20140618
  Transmission Date: 20141212
  Serious: Yes (Hospitalization)
  Sender: FDA-Public Use
  Company Number: ES-AMGEN INC.-ESPCT2014044205

PATIENT
  Age: 85 Year
  Sex: Female

DRUGS (2)
  1. PANITUMUMAB [Suspect]
     Indication: PRODUCT USED FOR UNKNOWN INDICATION
     Dosage: UNK
     Route: 065
     Dates: start: 20140522
  2. CAPECITABINE [Concomitant]
     Dosage: UNK
     Dates: start: 20140522

REACTIONS (2)
  - Diarrhoea [Recovering/Resolving]
  - Urinary tract infection [Recovering/Resolving]
